FAERS Safety Report 4862519-9 (Version None)
Quarter: 2005Q4

REPORT INFORMATION
  Report Type: 
  Country: None (occurrence: None)
  Receive Date: 20051216
  Receipt Date: 20051216
  Transmission Date: 20060501
  Serious: Yes (Other)
  Sender: FDA-Public Use
  Company Number: None

PATIENT
  Age: 48 Year
  Sex: Female
  Weight: 74.8435 kg

DRUGS (3)
  1. EFFEXOR XR [Suspect]
     Indication: HOT FLUSH
     Dosage: 75MG  ONE PER DAY PO
     Route: 048
     Dates: start: 20050315, end: 20050929
  2. EFFEXOR XR [Suspect]
     Indication: MENOPAUSE
     Dosage: 75MG  ONE PER DAY PO
     Route: 048
     Dates: start: 20050315, end: 20050929
  3. EFFEXOR XR [Suspect]
     Indication: MOOD SWINGS
     Dosage: 75MG  ONE PER DAY PO
     Route: 048
     Dates: start: 20050315, end: 20050929

REACTIONS (5)
  - DRUG WITHDRAWAL SYNDROME [None]
  - FEELING ABNORMAL [None]
  - LOSS OF EMPLOYMENT [None]
  - PAIN [None]
  - TREATMENT NONCOMPLIANCE [None]
